FAERS Safety Report 14509289 (Version 11)
Quarter: 2021Q2

REPORT INFORMATION
  Report Type: Report from Study
  Country: None (occurrence: NL)
  Receive Date: 20180209
  Receipt Date: 20210621
  Transmission Date: 20210716
  Serious: Yes (Hospitalization)
  Sender: FDA-Public Use
  Company Number: NL-ABBVIE-17K-114-2157235-00

PATIENT
  Age: 72 Year
  Sex: Female
  Weight: 79.5 kg

DRUGS (8)
  1. DUODOPA [Suspect]
     Active Substance: CARBIDOPA\LEVODOPA
     Dosage: MD: 7.5ML, CD: 2.9 ML/H, ED: 3.0 ML.
     Route: 050
  2. FORLAX [Concomitant]
     Active Substance: POLYETHYLENE GLYCOL 4000
     Indication: CONSTIPATION
  3. NEUPRO [Concomitant]
     Active Substance: ROTIGOTINE
     Indication: PRODUCT USED FOR UNKNOWN INDICATION
     Route: 062
  4. DUODOPA [Suspect]
     Active Substance: CARBIDOPA\LEVODOPA
     Indication: PARKINSON^S DISEASE
     Dosage: MD: 7.0, CD: 2.5, ED: 2.0
     Route: 050
     Dates: start: 20100927
  5. RIVOTRIL [Concomitant]
     Active Substance: CLONAZEPAM
     Indication: PRODUCT USED FOR UNKNOWN INDICATION
  6. RIVASTIGMIN [Concomitant]
     Active Substance: RIVASTIGMINE
     Indication: PRODUCT USED FOR UNKNOWN INDICATION
  7. CLOZAPINE. [Concomitant]
     Active Substance: CLOZAPINE
     Indication: PRODUCT USED FOR UNKNOWN INDICATION
  8. MADOPAR HBS [Concomitant]
     Active Substance: BENSERAZIDE HYDROCHLORIDE\LEVODOPA
     Indication: PRODUCT USED FOR UNKNOWN INDICATION

REACTIONS (31)
  - Tremor [Recovering/Resolving]
  - Initial insomnia [Recovered/Resolved]
  - Delirium [Recovered/Resolved]
  - Muscle rigidity [Recovering/Resolving]
  - Stoma site discharge [Not Recovered/Not Resolved]
  - Incontinence [Not Recovered/Not Resolved]
  - Urinary tract infection [Recovered/Resolved]
  - Fatigue [Recovered/Resolved]
  - On and off phenomenon [Recovered/Resolved]
  - Memory impairment [Not Recovered/Not Resolved]
  - Device dislocation [Unknown]
  - Nocturia [Not Recovered/Not Resolved]
  - Gait disturbance [Recovering/Resolving]
  - Hallucination [Recovered/Resolved]
  - Excessive granulation tissue [Not Recovered/Not Resolved]
  - Weight increased [Recovered/Resolved]
  - Cognitive disorder [Recovered/Resolved]
  - Fibroma [Not Recovered/Not Resolved]
  - Medical device change [Unknown]
  - Bradykinesia [Recovering/Resolving]
  - Weight decreased [Recovered/Resolved]
  - Stoma site irritation [Recovering/Resolving]
  - Impaired quality of life [Unknown]
  - Dyskinesia [Recovering/Resolving]
  - Hallucination, visual [Recovered/Resolved]
  - Stoma site erythema [Not Recovered/Not Resolved]
  - Middle insomnia [Not Recovered/Not Resolved]
  - Weight decreased [Not Recovered/Not Resolved]
  - Cognitive disorder [Not Recovered/Not Resolved]
  - Abnormal dreams [Recovered/Resolved]
  - Stoma site reaction [Unknown]

NARRATIVE: CASE EVENT DATE: 2018
